FAERS Safety Report 6968121-7 (Version None)
Quarter: 2010Q3

REPORT INFORMATION
  Report Type: 
  Country: None (occurrence: None)
  Receive Date: 20100907
  Receipt Date: 20100831
  Transmission Date: 20110219
  Serious: Yes (Death, Hospitalization)
  Sender: FDA-Public Use
  Company Number: A0879651A

PATIENT
  Age: 79 Year
  Sex: Male
  Weight: 81.8 kg

DRUGS (3)
  1. MELPHALAN [Suspect]
     Indication: MULTIPLE MYELOMA
     Dosage: 16MG PER DAY
     Route: 048
     Dates: start: 20100412, end: 20100415
  2. PREDNISONE [Suspect]
     Indication: MULTIPLE MYELOMA
     Route: 048
     Dates: start: 20100412, end: 20100415
  3. VELCADE [Suspect]
     Indication: MULTIPLE MYELOMA
     Dosage: 2MG WEEKLY
     Route: 042
     Dates: start: 20100311, end: 20100412

REACTIONS (6)
  - ASTHENIA [None]
  - CLOSTRIDIUM TEST POSITIVE [None]
  - DEATH [None]
  - DEHYDRATION [None]
  - HYPOTENSION [None]
  - RENAL FAILURE ACUTE [None]
